FAERS Safety Report 24265296 (Version 1)
Quarter: 2024Q3

REPORT INFORMATION
  Report Type: Spontaneous
  Country: BR (occurrence: BR)
  Receive Date: 20240829
  Receipt Date: 20240829
  Transmission Date: 20241017
  Serious: Yes (Death)
  Sender: ELI LILLY AND CO
  Company Number: BR-ELI_LILLY_AND_COMPANY-BR202407008202

PATIENT
  Sex: Female

DRUGS (1)
  1. ABEMACICLIB [Suspect]
     Active Substance: ABEMACICLIB
     Indication: Product used for unknown indication
     Dosage: UNK UNK, UNKNOWN
     Route: 065
     Dates: start: 20240703

REACTIONS (1)
  - Death [Fatal]

NARRATIVE: CASE EVENT DATE: 20240725
